FAERS Safety Report 8327237-3 (Version None)
Quarter: 2012Q2

REPORT INFORMATION
  Report Type: 
  Country: None (occurrence: None)
  Receive Date: 20120501
  Receipt Date: 20120426
  Transmission Date: 20120825
  Serious: Yes (Death, Hospitalization)
  Sender: FDA-Public Use
  Company Number: US-AMGEN-USASP2012023591

PATIENT
  Age: 86 Year
  Sex: Male
  Weight: 62.585 kg

DRUGS (20)
  1. LANTUS [Concomitant]
     Indication: DIABETES MELLITUS
     Dosage: 12 UNIT, UNK
     Route: 058
  2. PRAVACHOL [Concomitant]
     Indication: BLOOD TRIGLYCERIDES INCREASED
  3. BIDIL [Concomitant]
     Indication: CARDIAC FAILURE CONGESTIVE
     Route: 048
  4. ARANESP [Suspect]
     Indication: MYELODYSPLASTIC SYNDROME
     Dosage: 150 MUG, ONE TIME DOSE
     Route: 058
     Dates: start: 20111012, end: 20111012
  5. RESTORIL                           /00393701/ [Concomitant]
     Indication: INSOMNIA
     Dosage: 15 MG, PRN
  6. ZITHROMAX [Concomitant]
     Indication: INFECTION
     Dosage: 500 MG, QD
     Route: 048
     Dates: end: 20110909
  7. APRESOLINE [Concomitant]
     Indication: HYPERTENSION
     Dosage: 20 MG, TID
     Route: 048
  8. DAYPRO [Concomitant]
     Indication: ARTHRITIS
     Dosage: 600 MG, QD
     Route: 048
  9. NEULASTA [Suspect]
     Indication: MYELODYSPLASTIC SYNDROME
     Dosage: 480 UNIT, ONE TIME DOSE
     Route: 065
     Dates: start: 20110819, end: 20110819
  10. NITROSTAT [Concomitant]
     Indication: ANGINA PECTORIS
     Dosage: .4 MG, PRN
     Route: 060
  11. PRAVACHOL [Concomitant]
     Indication: BLOOD CHOLESTEROL INCREASED
     Dosage: 40 MG, QD
  12. COREG [Concomitant]
     Indication: CARDIAC FAILURE CONGESTIVE
     Dosage: 3.125 MG, BID
  13. BUMEX [Concomitant]
     Indication: OEDEMA
     Dosage: 2 MG, QD
  14. IMDUR [Concomitant]
     Indication: ANGINA PECTORIS
     Dosage: 30 MG, QD
     Route: 048
  15. PLAVIX [Concomitant]
     Indication: PROPHYLAXIS
     Dosage: 75 MG, QD
     Route: 048
  16. OXYCODONE                          /00045603/ [Concomitant]
     Indication: PAIN
     Dosage: 5 MG, Q6H
  17. BUMEX [Concomitant]
     Indication: FLUID RETENTION
  18. PRILOSEC [Concomitant]
     Indication: GASTRIC PH DECREASED
     Dosage: 40 MG, QD
     Route: 048
  19. ZYLOPRIM [Concomitant]
     Indication: GOUT
     Dosage: 100 MG, BID
  20. MILRINONE LACTATE [Concomitant]
     Indication: CARDIAC FAILURE
     Route: 042

REACTIONS (15)
  - ELECTROCARDIOGRAM ABNORMAL [None]
  - CARDIAC FAILURE CONGESTIVE [None]
  - HYPOTENSION [None]
  - CHEST PAIN [None]
  - ABDOMINAL DISCOMFORT [None]
  - GASTRIC PH DECREASED [None]
  - PANCYTOPENIA [None]
  - INFECTION [None]
  - HYPERLIPIDAEMIA [None]
  - INSOMNIA [None]
  - PAIN [None]
  - GOUT [None]
  - ARTHRITIS [None]
  - CARDIOMYOPATHY [None]
  - ASTHENIA [None]
